FAERS Safety Report 11793936 (Version 1)
Quarter: 2015Q4

REPORT INFORMATION
  Report Type: Spontaneous
  Country: US (occurrence: US)
  Receive Date: 20151202
  Receipt Date: 20151202
  Transmission Date: 20160305
  Serious: Yes (Other)
  Sender: FDA-Public Use
  Company Number: US-PFIZER INC-2015401297

PATIENT
  Age: 4 Decade
  Sex: Female

DRUGS (2)
  1. LYRICA [Suspect]
     Active Substance: PREGABALIN
     Indication: PAIN
  2. LYRICA [Suspect]
     Active Substance: PREGABALIN
     Indication: BURNING SENSATION
     Dosage: 150MG CAPSULE UP TO 3 TIMES A DAY, FOR A TOTAL OF 450MG A DAY, AS NEEDED
     Route: 048
     Dates: end: 20151119

REACTIONS (12)
  - Feeling abnormal [Unknown]
  - Drug dependence [Not Recovered/Not Resolved]
  - Condition aggravated [Recovered/Resolved]
  - Chills [Recovered/Resolved]
  - Diarrhoea [Recovered/Resolved]
  - Headache [Recovered/Resolved]
  - Suicidal ideation [Unknown]
  - Pain [Recovered/Resolved]
  - Drug withdrawal syndrome [Recovered/Resolved]
  - Fibromyalgia [Recovered/Resolved]
  - Abdominal discomfort [Recovered/Resolved]
  - Vomiting [Recovered/Resolved]
